FAERS Safety Report 11402301 (Version 1)
Quarter: 2015Q3

REPORT INFORMATION
  Report Type: Spontaneous
  Country: US (occurrence: None)
  Receive Date: 20150819
  Receipt Date: 20150819
  Transmission Date: 20151125
  Serious: Yes (Hospitalization)
  Sender: FDA-Public Use
  Company Number: None

PATIENT
  Age: 40 Year
  Sex: Male
  Weight: 138.1 kg

DRUGS (1)
  1. BLEOMYCIN [Suspect]
     Active Substance: BLEOMYCIN SULFATE
     Indication: TESTICULAR GERM CELL CANCER
     Route: 042
     Dates: start: 20150504, end: 20150615

REACTIONS (4)
  - Respiratory failure [None]
  - Toxicity to various agents [None]
  - Stomatitis [None]
  - Blister [None]

NARRATIVE: CASE EVENT DATE: 20150703
